FAERS Safety Report 10930535 (Version 1)
Quarter: 2015Q1

REPORT INFORMATION
  Report Type: Spontaneous
  Country: US (occurrence: None)
  Receive Date: 20150317
  Receipt Date: 20150317
  Transmission Date: 20150721
  Serious: Yes (Life-Threatening)
  Sender: FDA-Public Use
  Company Number: 2015BV000007

PATIENT
  Age: 42 Year
  Sex: Female

DRUGS (2)
  1. HYDROCODONE BITARTRATE AND ACETAMINOPHEN [Concomitant]
     Active Substance: ACETAMINOPHEN\HYDROCODONE BITARTRATE
  2. SUMATRIPTAN SUCCINATE. [Suspect]
     Active Substance: SUMATRIPTAN SUCCINATE
     Indication: MIGRAINE
     Route: 058

REACTIONS (11)
  - Torsade de pointes [None]
  - Cardiac arrest [None]
  - Pulse absent [None]
  - Left atrial dilatation [None]
  - Blood pressure increased [None]
  - Left ventricular hypertrophy [None]
  - Cerebrovascular accident [None]
  - Atrial fibrillation [None]
  - Seizure [None]
  - Medication error [None]
  - Ventricular fibrillation [None]
